FAERS Safety Report 9313186 (Version 1)
Quarter: 2013Q2

REPORT INFORMATION
  Report Type: Spontaneous
  Country: BR (occurrence: BR)
  Receive Date: 20130528
  Receipt Date: 20130528
  Transmission Date: 20140414
  Serious: Yes (Hospitalization, Other)
  Sender: FDA-Public Use
  Company Number: BR-ELI_LILLY_AND_COMPANY-BR201305004851

PATIENT
  Age: 99 Year
  Sex: Female
  Weight: 38 kg

DRUGS (3)
  1. FORTEO [Suspect]
     Indication: OSTEOPOROSIS
     Dosage: 20 UG, QD
     Route: 058
     Dates: start: 201005
  2. OXCARBAZEPINA [Concomitant]
     Dosage: 300 MG, BID
     Route: 065
  3. GABAPENTINA [Concomitant]
     Dosage: 300 MG, UNKNOWN
     Route: 065

REACTIONS (10)
  - Anaemia [Recovered/Resolved]
  - Pneumonia [Recovered/Resolved]
  - Emphysema [Unknown]
  - Trigeminal neuralgia [Unknown]
  - Asthenia [Unknown]
  - Speech disorder [Unknown]
  - Mental disorder [Unknown]
  - Influenza [Unknown]
  - Cough [Unknown]
  - Labyrinthitis [Unknown]
